FAERS Safety Report 11008744 (Version 1)
Quarter: 2015Q2

REPORT INFORMATION
  Report Type: Spontaneous
  Country: US (occurrence: None)
  Receive Date: 20150403
  Receipt Date: 20150403
  Transmission Date: 20150821
  Serious: Yes (Hospitalization)
  Sender: FDA-Public Use
  Company Number: 2014TUS014235

PATIENT
  Sex: Female

DRUGS (2)
  1. CONTRAVE [Suspect]
     Active Substance: BUPROPION HYDROCHLORIDE\NALTREXONE HYDROCHLORIDE
     Indication: WEIGHT DECREASED
     Dosage: 1 TABLET, QD, 1 OR 2 DOSES, ORAL
     Route: 048
     Dates: start: 201412, end: 201412
  2. CONTRAVE [Suspect]
     Active Substance: BUPROPION HYDROCHLORIDE\NALTREXONE HYDROCHLORIDE
     Indication: OVERWEIGHT
     Dosage: 1 TABLET, QD, 1 OR 2 DOSES, ORAL
     Route: 048
     Dates: start: 201412, end: 201412

REACTIONS (3)
  - Nausea [None]
  - Vomiting [None]
  - Dehydration [None]
